APPROVED DRUG PRODUCT: DILTIAZEM HYDROCHLORIDE
Active Ingredient: DILTIAZEM HYDROCHLORIDE
Strength: 240MG
Dosage Form/Route: CAPSULE, EXTENDED RELEASE;ORAL
Application: A074943 | Product #001 | TE Code: AB2
Applicant: APOTEX INC
Approved: Aug 6, 1998 | RLD: No | RS: Yes | Type: RX